FAERS Safety Report 11272940 (Version 4)
Quarter: 2016Q1

REPORT INFORMATION
  Report Type: Spontaneous
  Country: US (occurrence: US)
  Receive Date: 20150715
  Receipt Date: 20160125
  Transmission Date: 20160525
  Serious: No
  Sender: FDA-Public Use
  Company Number: US-PFIZER INC-2015233249

PATIENT
  Age: 59 Year
  Sex: Female
  Weight: 49.98 kg

DRUGS (3)
  1. XELJANZ [Suspect]
     Active Substance: TOFACITINIB CITRATE
     Indication: RHEUMATOID ARTHRITIS
     Dosage: 5 MG, TWICE A DAY
     Route: 048
     Dates: start: 201408
  2. HYDROXYCHLOROQUINE [Concomitant]
     Active Substance: HYDROXYCHLOROQUINE
     Dosage: UNK
  3. PAROXETINE [Concomitant]
     Active Substance: PAROXETINE\PAROXETINE HYDROCHLORIDE
     Dosage: UNK

REACTIONS (11)
  - Oral pain [Not Recovered/Not Resolved]
  - Paraesthesia [Unknown]
  - Oropharyngeal pain [Unknown]
  - Mouth injury [Unknown]
  - Cheilitis [Unknown]
  - Laceration [Unknown]
  - Stomatitis [Unknown]
  - White blood cell count decreased [Unknown]
  - Localised infection [Unknown]
  - Dysphonia [Unknown]
  - Hypoaesthesia [Unknown]

NARRATIVE: CASE EVENT DATE: 201510
